FAERS Safety Report 21658661 (Version 2)
Quarter: 2022Q4

REPORT INFORMATION
  Report Type: Spontaneous
  Country: US (occurrence: US)
  Receive Date: 20221129
  Receipt Date: 20221222
  Transmission Date: 20230113
  Serious: No
  Sender: FDA-Public Use
  Company Number: US-BRISTOL-MYERS SQUIBB COMPANY-2022-145033

PATIENT
  Age: 85 Year
  Sex: Male
  Weight: 84 kg

DRUGS (2)
  1. REVLIMID [Suspect]
     Active Substance: LENALIDOMIDE
     Indication: Diffuse large B-cell lymphoma
     Dosage: FREQUENCY- 21
     Dates: start: 20221119
  2. MONJUVI [Concomitant]
     Active Substance: TAFASITAMAB-CXIX
     Indication: Product used for unknown indication

REACTIONS (2)
  - Rash [Recovering/Resolving]
  - Off label use [Unknown]
